FAERS Safety Report 8048170-0 (Version None)
Quarter: 2012Q1

REPORT INFORMATION
  Report Type: 
  Country: None (occurrence: None)
  Receive Date: 20120117
  Receipt Date: 20120109
  Transmission Date: 20120608
  Serious: Yes (Other)
  Sender: FDA-Public Use
  Company Number: US-BAYER-2010-002236

PATIENT
  Age: 31 Year
  Sex: Female
  Weight: 68 kg

DRUGS (10)
  1. YAZ [Suspect]
     Indication: CONTRACEPTION
     Dosage: UNK
     Dates: start: 20060101, end: 20090101
  2. YAZ [Suspect]
     Indication: PREMENSTRUAL SYNDROME
  3. YASMIN [Suspect]
     Indication: CONTRACEPTION
     Dosage: UNK
     Dates: start: 20060101, end: 20090101
  4. YASMIN [Suspect]
     Indication: PREMENSTRUAL SYNDROME
  5. YASMIN [Suspect]
  6. YAZ [Suspect]
     Indication: ACNE
  7. TYLENOL WITH CODEIN #3 [Concomitant]
     Dosage: UNK
     Dates: start: 20070101, end: 20100101
  8. YASMIN [Suspect]
     Indication: ACNE
  9. DARVOCET [Concomitant]
     Dosage: UNK
     Dates: start: 20080101, end: 20100101
  10. YAZ [Suspect]

REACTIONS (3)
  - GALLBLADDER INJURY [None]
  - BILIARY DYSKINESIA [None]
  - CHOLECYSTITIS CHRONIC [None]
